FAERS Safety Report 10971205 (Version 1)
Quarter: 2015Q1

REPORT INFORMATION
  Report Type: Spontaneous
  Country: FR (occurrence: FR)
  Receive Date: 20150331
  Receipt Date: 20150331
  Transmission Date: 20150721
  Serious: Yes (Disabling)
  Sender: FDA-Public Use
  Company Number: FR-TEVA-550844ISR

PATIENT
  Age: 60 Year
  Sex: Female

DRUGS (3)
  1. AZILECT [Suspect]
     Active Substance: RASAGILINE MESYLATE
     Indication: PARKINSON^S DISEASE
     Dosage: 1 MILLIGRAM DAILY;
     Route: 048
     Dates: start: 201407, end: 20140905
  2. AZILECT [Suspect]
     Active Substance: RASAGILINE MESYLATE
     Route: 048
     Dates: start: 20141105, end: 20141224
  3. GINKGO EXTRACT\HEPTAMINOL\TROXERUTIN [Concomitant]
     Active Substance: GINKGO\HEPTAMINOL\TROXERUTIN
     Indication: PERIPHERAL VENOUS DISEASE
     Dosage: 2 DOSAGE FORMS DAILY;
     Route: 048
     Dates: start: 2004

REACTIONS (5)
  - Constipation [Recovered/Resolved]
  - Flatulence [Recovered/Resolved]
  - Pollakiuria [Recovering/Resolving]
  - Arthralgia [Not Recovered/Not Resolved]
  - Abnormal dreams [Recovered/Resolved]

NARRATIVE: CASE EVENT DATE: 201411
